FAERS Safety Report 4440837-6 (Version None)
Quarter: 2004Q3

REPORT INFORMATION
  Report Type: 
  Country: None (occurrence: None)
  Receive Date: 20040903
  Receipt Date: 20040802
  Transmission Date: 20050211
  Serious: Yes (Other)
  Sender: FDA-Public Use
  Company Number: IT-GLAXOSMITHKLINE-B0341917A

PATIENT
  Age: 40 Year
  Sex: Female

DRUGS (1)
  1. SALBUTAMOL SULPHATE [Suspect]
     Dosage: 80MG PER DAY
     Route: 042
     Dates: start: 20040727, end: 20040728

REACTIONS (6)
  - DRUG EXPOSURE DURING PREGNANCY [None]
  - HYPOKALAEMIA [None]
  - INTRA-UTERINE DEATH [None]
  - NAUSEA [None]
  - VOMITING [None]
  - VOMITING PROJECTILE [None]
